FAERS Safety Report 17286899 (Version 1)
Quarter: 2020Q1

REPORT INFORMATION
  Report Type: Spontaneous
  Country: CN (occurrence: CN)
  Receive Date: 20200120
  Receipt Date: 20200120
  Transmission Date: 20200409
  Serious: Yes (Other)
  Sender: FDA-Public Use
  Company Number: CN-SA-2020SA012871

PATIENT
  Age: 61 Year
  Sex: Female
  Weight: 60 kg

DRUGS (8)
  1. BEVACIZUMAB. [Suspect]
     Active Substance: BEVACIZUMAB
     Indication: CHEMOTHERAPY
     Dosage: 300 MG, QD
     Route: 041
     Dates: start: 20191030, end: 20191128
  2. SODIUM CHLORIDE. [Concomitant]
     Active Substance: SODIUM CHLORIDE
     Dosage: 100 ML, QD
     Route: 042
     Dates: start: 20191128, end: 20191128
  3. FLUOROURACIL. [Suspect]
     Active Substance: FLUOROURACIL
     Dosage: 3500 MG, QD
     Route: 065
     Dates: start: 20191128, end: 20191128
  4. GLUCOSE [Concomitant]
     Active Substance: DEXTROSE
     Indication: MEDICATION DILUTION
     Dosage: 500 ML, QD
     Route: 041
     Dates: start: 20191128, end: 20191128
  5. SODIUM CHLORIDE. [Concomitant]
     Active Substance: SODIUM CHLORIDE
     Dosage: 130 ML, QD
     Route: 065
     Dates: start: 20191128, end: 20191128
  6. FLUOROURACIL. [Suspect]
     Active Substance: FLUOROURACIL
     Indication: CHEMOTHERAPY
     Dosage: 500 MG, QD
     Route: 042
     Dates: start: 20191030, end: 20191128
  7. SODIUM CHLORIDE. [Concomitant]
     Active Substance: SODIUM CHLORIDE
     Indication: MEDICATION DILUTION
     Dosage: 100 ML, QD
     Route: 041
     Dates: start: 20191128, end: 20191128
  8. ELOXATIN [Suspect]
     Active Substance: OXALIPLATIN
     Indication: CHEMOTHERAPY
     Dosage: 120 MG, QD
     Route: 041
     Dates: start: 20191030, end: 20191128

REACTIONS (2)
  - Renal impairment [Recovering/Resolving]
  - Cardiac function test abnormal [Recovering/Resolving]

NARRATIVE: CASE EVENT DATE: 20191211
